FAERS Safety Report 6707779-4 (Version None)
Quarter: 2010Q2

REPORT INFORMATION
  Report Type: 
  Country: None (occurrence: None)
  Receive Date: 20100503
  Receipt Date: 20090929
  Transmission Date: 20101027
  Serious: No
  Sender: FDA-Public Use
  Company Number: US-ASTRAZENECA-2009SE16722

PATIENT
  Age: 69 Year
  Sex: Female

DRUGS (2)
  1. NEXIUM [Suspect]
     Indication: GASTROOESOPHAGEAL REFLUX DISEASE
     Route: 048
     Dates: start: 20090926
  2. VITAMIN D AND CALCIUM [Concomitant]

REACTIONS (5)
  - NAUSEA [None]
  - PRODUCT TASTE ABNORMAL [None]
  - SENSATION OF FOREIGN BODY [None]
  - TINNITUS [None]
  - VERTIGO [None]
